FAERS Safety Report 10525499 (Version 3)
Quarter: 2014Q4

REPORT INFORMATION
  Report Type: Report from Study
  Country: DE (occurrence: DE)
  Receive Date: 20141017
  Receipt Date: 20141118
  Transmission Date: 20150528
  Serious: Yes (Death, Hospitalization)
  Sender: FDA-Public Use
  Company Number: DE-JNJFOC-20140509917

PATIENT
  Age: 67 Year
  Sex: Female

DRUGS (15)
  1. PANTOPRAZOLE [Concomitant]
     Active Substance: PANTOPRAZOLE SODIUM
  2. CLEXANE [Concomitant]
     Active Substance: ENOXAPARIN SODIUM
  3. SANDIMMUN OPTORAL [Concomitant]
     Active Substance: CYCLOSPORINE
  4. FORTIMEL [Concomitant]
     Active Substance: DIETARY SUPPLEMENT
  5. RAMIPRIL. [Concomitant]
     Active Substance: RAMIPRIL
  6. BISOPROLOL [Concomitant]
     Active Substance: BISOPROLOL
  7. AMITRIPTYLIN [Concomitant]
     Active Substance: AMITRIPTYLINE
  8. ACTONEL [Concomitant]
     Active Substance: RISEDRONATE SODIUM
  9. DEKRISTOL [Concomitant]
     Active Substance: CHOLECALCIFEROL
  10. SOVALDI [Concomitant]
     Active Substance: SOFOSBUVIR
  11. LEVETIRACETAM. [Concomitant]
     Active Substance: LEVETIRACETAM
  12. ACTRAPID [Concomitant]
     Active Substance: INSULIN HUMAN
  13. TMC435350 [Suspect]
     Active Substance: SIMEPREVIR
     Indication: HEPATITIS C
     Route: 048
     Dates: start: 20140228
  14. PREDNISOLON [Concomitant]
     Active Substance: PREDNISOLONE
  15. THIAMIN [Concomitant]
     Active Substance: THIAMINE

REACTIONS (7)
  - Aortic valve stenosis [Recovered/Resolved]
  - Pneumonia [Recovered/Resolved]
  - Infection [Recovered/Resolved]
  - Haemothorax [Recovered/Resolved]
  - Renal impairment [Not Recovered/Not Resolved]
  - Sepsis [Fatal]
  - Pleural effusion [Recovered/Resolved]

NARRATIVE: CASE EVENT DATE: 20140426
